FAERS Safety Report 9118316 (Version 2)
Quarter: 2013Q2

REPORT INFORMATION
  Report Type: Spontaneous
  Country: CN (occurrence: None)
  Receive Date: 20130128
  Receipt Date: 20130611
  Transmission Date: 20140414
  Serious: Yes (Hospitalization)
  Sender: FDA-Public Use
  Company Number: DSA_62076_2013

PATIENT
  Age: 51 Year
  Sex: Male

DRUGS (11)
  1. 5-FU [Suspect]
     Indication: COLON CANCER
     Dosage: (726 MG 1X /2 WEEKS  INTRAVENOUS BOLUS)?(12/06/2012  TO  12/06/2012)
     Route: 040
     Dates: start: 20121206, end: 20121206
  2. BLINDED THERAPY [Suspect]
     Indication: COLON CANCER
     Dosage: (304 MG 1X  /2 WEEKS INTRAVENOUS DRIP)?(12/06/2012  TO  12/06/2012)
     Route: 041
     Dates: start: 20121206, end: 20121206
  3. IRINOTECAN [Suspect]
     Indication: COLON CANCER
     Dosage: (331.2 MG 1X /2 WEEKS INTRAVENOUS DRIP)?(12/06/2012  TO  12/06/2012)
     Route: 041
     Dates: start: 20121206, end: 20121206
  4. LEUCOVORIN [Suspect]
     Indication: COLON CANCER
     Dosage: (736 MG 1X /2 WEEKS INTRAVENOUS DRIP)?(12/06/2012  TO  12/06/2012)
     Route: 041
     Dates: start: 20121206, end: 20121206
  5. SEROTONIN ANTAGONISTS [Concomitant]
  6. DEXAMETHASONE [Concomitant]
  7. PROMETHAZINE [Concomitant]
  8. LOPERAMIDE HYDROCHLORIDE [Concomitant]
  9. OXALIPLATIN [Concomitant]
  10. TEGAFUR [Concomitant]
  11. FUDR [Concomitant]

REACTIONS (2)
  - Proteinuria [None]
  - Nephropathy toxic [None]
